FAERS Safety Report 5162181-4 (Version None)
Quarter: 2006Q4

REPORT INFORMATION
  Report Type: 
  Country: None (occurrence: None)
  Receive Date: 20061121
  Receipt Date: 20061112
  Transmission Date: 20070319
  Serious: Yes (Hospitalization)
  Sender: FDA-Public Use
  Company Number: THYR-10344

PATIENT
  Sex: Female

DRUGS (2)
  1. THYROGEN [Suspect]
     Indication: TOXIC NODULAR GOITRE
     Dosage: 0.3 MG ONCE IM
     Route: 030
     Dates: start: 20030101, end: 20030101
  2. NEO-MERCAZOLE TAB [Concomitant]

REACTIONS (6)
  - HYPERTHYROIDISM [None]
  - ODYNOPHAGIA [None]
  - ORAL INTAKE REDUCED [None]
  - STRIDOR [None]
  - THYROID PAIN [None]
  - THYROIDITIS [None]
